FAERS Safety Report 7424316-X (Version None)
Quarter: 2011Q2

REPORT INFORMATION
  Report Type: 
  Country: None (occurrence: None)
  Receive Date: 20110419
  Receipt Date: 20110412
  Transmission Date: 20111010
  Serious: Yes (Hospitalization)
  Sender: FDA-Public Use
  Company Number: US-US-EMD SERONO, INC.-7052168

PATIENT
  Sex: Female
  Weight: 45 kg

DRUGS (7)
  1. NEURONTIN [Concomitant]
     Indication: PROPHYLAXIS
  2. REBIF [Suspect]
     Indication: MULTIPLE SCLEROSIS
     Route: 058
     Dates: start: 20040101
  3. WELLBUTRIN [Concomitant]
     Indication: FATIGUE
  4. AMBIEN [Concomitant]
     Indication: SLEEP DISORDER
  5. IBUPROFEN [Concomitant]
     Indication: PREMEDICATION
  6. ACETAMINOPHEN [Concomitant]
     Indication: PREMEDICATION
  7. NEURONTIN [Concomitant]
     Indication: NEURALGIA

REACTIONS (7)
  - INJECTION SITE NODULE [None]
  - ERYTHEMA [None]
  - PAIN IN EXTREMITY [None]
  - MULTIPLE SCLEROSIS RELAPSE [None]
  - SKIN WARM [None]
  - INJECTION SITE NECROSIS [None]
  - INJECTION SITE CELLULITIS [None]
